FAERS Safety Report 7000246-2 (Version None)
Quarter: 2010Q3

REPORT INFORMATION
  Report Type: 
  Country: None (occurrence: None)
  Receive Date: 20100920
  Receipt Date: 20070529
  Transmission Date: 20110219
  Serious: Yes (Hospitalization, Disabling)
  Sender: FDA-Public Use
  Company Number: US-ASTRAZENECA-2006UW07035

PATIENT
  Age: 14444 Day
  Sex: Female
  Weight: 130.6 kg

DRUGS (14)
  1. SEROQUEL [Suspect]
     Indication: SCHIZOPHRENIA
     Dosage: 100-200 MG
     Route: 048
     Dates: start: 20020710, end: 20041201
  2. SEROQUEL [Suspect]
     Dosage: STRENGTH 100 MG, 200 MG
     Route: 048
     Dates: start: 20021219
  3. RISPERDAL [Suspect]
     Dates: start: 20030701, end: 20041201
  4. RISPERDAL [Suspect]
     Dates: start: 20030919
  5. ZYPREXA [Suspect]
     Dates: start: 20010401, end: 20020401
  6. ZYPREXA [Suspect]
     Dates: start: 20030301
  7. HALDOL [Concomitant]
     Dates: start: 20050201, end: 20060501
  8. THORAZINE [Concomitant]
  9. PREMPRO [Concomitant]
     Dosage: 625/2.5
     Dates: start: 20021219
  10. IBUPROFEN [Concomitant]
     Dates: start: 20021219
  11. CLONAZEPAM [Concomitant]
     Dates: start: 20030201
  12. VERAPAMIL EXTENDED-RELEASE [Concomitant]
     Dates: start: 20030107
  13. KETOPROFEN [Concomitant]
     Dates: start: 20030520
  14. ADVAIR DISKUS 100/50 [Concomitant]
     Dosage: 250/50
     Dates: start: 20041123

REACTIONS (3)
  - DIABETES MELLITUS [None]
  - TYPE 2 DIABETES MELLITUS [None]
  - WEIGHT INCREASED [None]
